FAERS Safety Report 16887007 (Version 1)
Quarter: 2019Q4

REPORT INFORMATION
  Report Type: Spontaneous
  Country: GB (occurrence: GB)
  Receive Date: 20191004
  Receipt Date: 20191004
  Transmission Date: 20200122
  Serious: Yes (Death, Hospitalization, Other)
  Sender: FDA-Public Use
  Company Number: GB-ASTRAZENECA-2019SF41246

PATIENT
  Age: 57 Year
  Sex: Female

DRUGS (3)
  1. CARBOPLATIN. [Concomitant]
     Active Substance: CARBOPLATIN
     Dosage: 6 CYCLES
     Dates: end: 201806
  2. OSIMERTINIB. [Suspect]
     Active Substance: OSIMERTINIB
     Indication: LUNG ADENOCARCINOMA
     Route: 048
     Dates: start: 20170125
  3. ETOPOSIDE. [Concomitant]
     Active Substance: ETOPOSIDE
     Dosage: 6 CYCLES
     Dates: end: 201806

REACTIONS (4)
  - Superior vena cava occlusion [Unknown]
  - Death [Fatal]
  - Malignant neoplasm progression [Unknown]
  - Malignant transformation [Unknown]

NARRATIVE: CASE EVENT DATE: 201801
